FAERS Safety Report 5216701-1 (Version None)
Quarter: 2007Q1

REPORT INFORMATION
  Report Type: 
  Country: None (occurrence: None)
  Receive Date: 20061130
  Receipt Date: 20060725
  Transmission Date: 20070707
  Serious: Yes (Other)
  Sender: FDA-Public Use
  Company Number: US200603004248

PATIENT
  Sex: Female
  Weight: 68.9 kg

DRUGS (1)
  1. ZYPREXA [Suspect]

REACTIONS (11)
  - CHOLELITHIASIS [None]
  - DIABETES MELLITUS [None]
  - EMOTIONAL DISTRESS [None]
  - HYPERGLYCAEMIA [None]
  - HYPERPHAGIA [None]
  - HYPERTENSION [None]
  - HYPOGLYCAEMIA [None]
  - PANCREATITIS [None]
  - POLYDIPSIA [None]
  - VISION BLURRED [None]
  - WEIGHT DECREASED [None]
